FAERS Safety Report 25410564 (Version 1)
Quarter: 2025Q2

REPORT INFORMATION
  Report Type: Spontaneous
  Country: US (occurrence: MX)
  Receive Date: 20250608
  Receipt Date: 20250608
  Transmission Date: 20250717
  Serious: Yes (Other)
  Sender: JOHNSON AND JOHNSON
  Company Number: US-BAYER-2025A074957

PATIENT
  Sex: Female
  Weight: 105 kg

DRUGS (2)
  1. XARELTO [Suspect]
     Active Substance: RIVAROXABAN
     Indication: Product used for unknown indication
     Route: 048
     Dates: end: 20250528
  2. XARELTO [Suspect]
     Active Substance: RIVAROXABAN
     Dosage: 2.5 MG, BID
     Route: 048
     Dates: start: 20250602

REACTIONS (2)
  - Endodontic procedure [Unknown]
  - Gingival operation [Unknown]
